FAERS Safety Report 4983220-7 (Version None)
Quarter: 2006Q2

REPORT INFORMATION
  Report Type: 
  Country: None (occurrence: None)
  Receive Date: 20060419
  Receipt Date: 20060405
  Transmission Date: 20061013
  Serious: Yes (Death, Hospitalization)
  Sender: FDA-Public Use
  Company Number: 2006-BP-03976RO

PATIENT
  Age: 72 Year
  Sex: Female

DRUGS (2)
  1. METHOTREXATE [Suspect]
     Indication: RHEUMATOID ARTHRITIS
     Dosage: 15 MG/DAY
  2. DIGOXIN [Concomitant]

REACTIONS (15)
  - ACCIDENTAL OVERDOSE [None]
  - ARTERIOSCLEROSIS CORONARY ARTERY [None]
  - BONE MARROW FAILURE [None]
  - CARDIAC HYPERTROPHY [None]
  - CEREBRAL HAEMORRHAGE [None]
  - DRUG TOXICITY [None]
  - IMMUNODEFICIENCY [None]
  - MUCOSAL HAEMORRHAGE [None]
  - MYOCARDIAL FIBROSIS [None]
  - PANCYTOPENIA [None]
  - PHARYNGITIS [None]
  - PULMONARY HAEMORRHAGE [None]
  - SEPTIC SHOCK [None]
  - STOMATITIS [None]
  - SYSTEMIC MYCOSIS [None]
